FAERS Safety Report 9530720 (Version 1)
Quarter: 2013Q2

REPORT INFORMATION
  Report Type: Spontaneous
  Country: US (occurrence: None)
  Receive Date: 20130418
  Receipt Date: 20130418
  Transmission Date: 20140414
  Serious: Yes (Hospitalization)
  Sender: FDA-Public Use
  Company Number: 1301USA001462

PATIENT
  Sex: Female

DRUGS (13)
  1. MONTELUKAST SODIUM [Suspect]
  2. TRAMADOL HYDROCHLORIDE [Suspect]
  3. VENLAFAXINE HYDROCHLORIDE [Suspect]
  4. SALMETEROL [Suspect]
  5. BECLOMETHASONE DIPROPIONATE [Suspect]
     Route: 045
  6. CLONAZEPAM [Suspect]
  7. NEURONTIN [Suspect]
  8. MEDROGESTONE (MEDROGESTONE) [Concomitant]
  9. SERTRALINE HYDROCHLORIDE (SERTRALINE HYDROCHLORIDE) [Concomitant]
  10. ACETAMINOPHEN (+) CAFFEINE (+) OPIUM (ACETAMINOPHEN, CAFFEINE, OPIUM) [Concomitant]
  11. HYDROXYZINE (HYDROXYZINE) [Concomitant]
  12. LORATIDINE [Concomitant]
  13. CETIRIZINE HYDROCHLORIDE (CETIRIZINE HYDROCHLORIDE) [Concomitant]

REACTIONS (2)
  - Urticaria [None]
  - Drug interaction [None]
